FAERS Safety Report 6924328-6 (Version None)
Quarter: 2010Q3

REPORT INFORMATION
  Report Type: 
  Country: None (occurrence: None)
  Receive Date: 20100811
  Receipt Date: 20100811
  Transmission Date: 20110219
  Serious: Yes (Hospitalization)
  Sender: FDA-Public Use
  Company Number: None

PATIENT
  Sex: Female
  Weight: 44.4525 kg

DRUGS (1)
  1. OMNIPAQUE 300 [Suspect]
     Indication: DIAGNOSTIC PROCEDURE
     Dosage: X3 INTRADISCAL
     Route: 024
     Dates: start: 20100629, end: 20100629

REACTIONS (2)
  - PAIN [None]
  - PYREXIA [None]
